FAERS Safety Report 11713554 (Version 2)
Quarter: 2015Q4

REPORT INFORMATION
  Report Type: Spontaneous
  Country: KR (occurrence: KR)
  Receive Date: 20151109
  Receipt Date: 20151228
  Transmission Date: 20160304
  Serious: Yes (Hospitalization)
  Sender: FDA-Public Use
  Company Number: KR-AXELLIA-000871

PATIENT
  Age: 49 Year
  Sex: Female
  Weight: 53 kg

DRUGS (3)
  1. VANCOMYCIN [Suspect]
     Active Substance: VANCOMYCIN
     Indication: PERITONITIS
     Dosage: 2 GM VANCOMYCIN WAS MIXED WITH 2L 1.5% DIALYSATE AND INSTILLED INTO PERITONEAL CAVITY WITHIN 15 MIN.
     Route: 033
  2. TOBRAMYCIN/TOBRAMYCIN SULFATE [Concomitant]
     Indication: PERITONITIS
     Dosage: DAILY ADMINISTRATION OF IP TOBRAMYCIN AT THE DOSE OF 40 MG WAS MAINTAINED
     Route: 033
  3. CEFAZOLIN/CEFAZOLIN SODIUM [Concomitant]
     Indication: PERITONITIS
     Route: 033

REACTIONS (8)
  - Throat tightness [Recovered/Resolved]
  - Paraesthesia [Recovered/Resolved]
  - Flushing [Recovered/Resolved]
  - Pruritus [Recovered/Resolved]
  - Urticaria [Recovered/Resolved]
  - Hypersensitivity [Recovered/Resolved]
  - White blood cell count decreased [Recovered/Resolved]
  - Anaphylactic reaction [Recovered/Resolved]
